FAERS Safety Report 8597338-3 (Version None)
Quarter: 2012Q3

REPORT INFORMATION
  Report Type: 
  Country: None (occurrence: None)
  Receive Date: 20120816
  Receipt Date: 20120810
  Transmission Date: 20120928
  Serious: No
  Sender: FDA-Public Use
  Company Number: US-PFIZER INC-2012196064

PATIENT
  Age: 55 Year

DRUGS (15)
  1. VICODIN [Concomitant]
     Indication: PAIN
     Dosage: (5-500 MG, ONE TABLET DAILY AS NEEDED)
  2. METAXALONE [Concomitant]
     Indication: PAIN
  3. ZYRTEC [Concomitant]
     Indication: HYPERSENSITIVITY
     Dosage: 10 MG, ONE TABLET DAILY AS NEEDED
  4. NEURONTIN [Suspect]
     Dosage: UNK
  5. PRILOSEC [Concomitant]
     Indication: DYSPEPSIA
     Dosage: 20 MG, (ONE TABLET DAILY)
  6. HYDROCHLOROTHIAZIDE [Concomitant]
     Indication: BLOOD PRESSURE ABNORMAL
     Dosage: 25 MG, ONE TABLET DAILY
  7. NITROGLYCERIN [Concomitant]
     Indication: CHEST PAIN
     Dosage: 0.4 MG, DISSOLVE ONE TABLET UNDER THE TONGUE AS NEEDED (UP TO THREE TABLETS, ONE EVERY FIVE MINUTES)
  8. EFFEXOR XR [Suspect]
     Indication: NEURALGIA
     Dosage: 150 MG, 2X/DAY
  9. ASCORBIC ACID [Concomitant]
     Dosage: 500 MG, (ONE TABLET DAILY)
  10. SIMVASTATIN [Concomitant]
     Indication: BLOOD CHOLESTEROL ABNORMAL
     Dosage: (80 MG, 1/2 TABLET DAILY)
  11. FLONASE [Concomitant]
     Dosage: 50 UG, TWO SPRAYS EACH NOSTRIL ONCE DAILY AS NEEDED (FLONASE 0.05% NASAL SPRAY)
  12. VIAGRA [Suspect]
     Dosage: 100 MG, ONE TABLET AS NEEDED
  13. ASPIRIN [Concomitant]
     Indication: CARDIAC DISORDER
     Dosage: 81 MG, (ONE TABLET DAILY)
  14. ATENOLOL [Concomitant]
     Indication: BLOOD PRESSURE ABNORMAL
     Dosage: 100 MG, ONE TABLET DAILY
  15. METAXALONE [Concomitant]
     Indication: MUSCLE SPASMS
     Dosage: 800 MG, ONE TABLET THREE TIMES DAILY AS NEEDED

REACTIONS (3)
  - HYPOAESTHESIA ORAL [None]
  - ABDOMINAL DISCOMFORT [None]
  - DRUG HYPERSENSITIVITY [None]
